FAERS Safety Report 25988808 (Version 1)
Quarter: 2025Q4

REPORT INFORMATION
  Report Type: Spontaneous
  Country: US (occurrence: US)
  Receive Date: 20251103
  Receipt Date: 20251103
  Transmission Date: 20260118
  Serious: No
  Sender: RIGEL PHARMACEUTICALS
  Company Number: US-RIGEL PHARMACEUTICALS, INC-20250600103

PATIENT
  Age: 68 Year
  Sex: Female
  Weight: 63.049 kg

DRUGS (6)
  1. GAVRETO [Suspect]
     Active Substance: PRALSETINIB
     Indication: Thyroid cancer
     Dosage: 300 MG, QD
     Route: 048
     Dates: start: 20240731
  2. GAVRETO [Suspect]
     Active Substance: PRALSETINIB
     Dosage: UNK
  3. GAVRETO [Suspect]
     Active Substance: PRALSETINIB
     Dosage: 300 MG, QD
     Route: 048
     Dates: start: 202407
  4. AMLODIPINE [Concomitant]
     Active Substance: AMLODIPINE BESYLATE
     Indication: Hypertension
     Dosage: UNK
  5. LISINOPRIL [Concomitant]
     Active Substance: LISINOPRIL
     Indication: Hypertension
     Dosage: UNK
  6. HYDROCHLOROTHIAZIDE [Concomitant]
     Active Substance: HYDROCHLOROTHIAZIDE
     Indication: Hypertension
     Dosage: UNK

REACTIONS (6)
  - Nail bed inflammation [Unknown]
  - Nail discolouration [Not Recovered/Not Resolved]
  - Onychoclasis [Not Recovered/Not Resolved]
  - Product prescribing issue [Unknown]
  - Fatigue [Unknown]
  - Nausea [Unknown]

NARRATIVE: CASE EVENT DATE: 20240731
